FAERS Safety Report 5013782-5 (Version None)
Quarter: 2006Q2

REPORT INFORMATION
  Report Type: 
  Country: None (occurrence: None)
  Receive Date: 20060530
  Receipt Date: 20060522
  Transmission Date: 20061013
  Serious: Yes (Hospitalization)
  Sender: FDA-Public Use
  Company Number: US-BRISTOL-MYERS SQUIBB COMPANY-13385091

PATIENT
  Age: 66 Year
  Sex: Male
  Weight: 92 kg

DRUGS (4)
  1. ERBITUX [Suspect]
     Indication: NON-SMALL CELL LUNG CANCER
     Dosage: 400 MG/M2 IV OVER 120 MIN D1WK1 ONLY/250 MG/M2 OVER 60 MIN WEEKLY X 6/TOT DOSE THIS COURSE = 1040 MG
     Route: 042
     Dates: start: 20060306, end: 20060306
  2. CARBOPLATIN [Suspect]
     Indication: NON-SMALL CELL LUNG CANCER
     Dosage: INITIATED ON 27-FEB-2006 = AUC +6 ON DAY 1 X 4 CYCLES/TOTAL DOSE THIS COURSE = 720 MG.
     Route: 042
     Dates: start: 20060227, end: 20060227
  3. PEMETREXED DISODIUM [Suspect]
     Indication: NON-SMALL CELL LUNG CANCER
     Dosage: INITIATED ON 27-FEB-2006 500 MG/M2 IV ON DAY 1 X 4 CYCLES/TOTAL DOSE THIS COURSE = 1040 MG.
     Route: 042
     Dates: start: 20060227, end: 20060227
  4. RADIATION THERAPY [Suspect]
     Indication: NON-SMALL CELL LUNG CANCER
     Dosage: 70 GY ON DAY 1 FOR 7 WEEKS.

REACTIONS (10)
  - ATRIAL FIBRILLATION [None]
  - BETA HAEMOLYTIC STREPTOCOCCAL INFECTION [None]
  - CULTURE THROAT POSITIVE [None]
  - FEBRILE NEUTROPENIA [None]
  - HYPOTENSION [None]
  - MENTAL STATUS CHANGES [None]
  - PANCYTOPENIA [None]
  - PLATELET COUNT DECREASED [None]
  - SEPTIC SHOCK [None]
  - WHITE BLOOD CELL COUNT DECREASED [None]
